FAERS Safety Report 7030019-6 (Version None)
Quarter: 2010Q4

REPORT INFORMATION
  Report Type: 
  Country: None (occurrence: None)
  Receive Date: 20101006
  Receipt Date: 20100927
  Transmission Date: 20110411
  Serious: Yes (Other)
  Sender: FDA-Public Use
  Company Number: PHFR2010GB03722

PATIENT
  Sex: Female

DRUGS (3)
  1. CLOZARIL [Suspect]
     Indication: SCHIZOPHRENIA
     Dosage: 850 MG/DAY
     Route: 048
     Dates: start: 19920806
  2. CLOZARIL [Suspect]
     Dosage: 425 MG, QD
  3. VALPROATE SODIUM [Concomitant]

REACTIONS (4)
  - ANTIPSYCHOTIC DRUG LEVEL INCREASED [None]
  - FATIGUE [None]
  - PETIT MAL EPILEPSY [None]
  - TREMOR [None]
